FAERS Safety Report 7419515-7 (Version None)
Quarter: 2011Q2

REPORT INFORMATION
  Report Type: 
  Country: None (occurrence: None)
  Receive Date: 20110412
  Receipt Date: 20110412
  Transmission Date: 20111010
  Serious: Yes (Other)
  Sender: FDA-Public Use
  Company Number: None

PATIENT
  Sex: Male
  Weight: 89.8122 kg

DRUGS (1)
  1. NIASPAN [Suspect]
     Indication: HIGH DENSITY LIPOPROTEIN DECREASED
     Dosage: 500MG DAILY PO
     Route: 048
     Dates: start: 20110102, end: 20110409

REACTIONS (5)
  - RASH [None]
  - HEAT RASH [None]
  - PRURITUS [None]
  - SWELLING [None]
  - FLUSHING [None]
